FAERS Safety Report 4873595-1 (Version None)
Quarter: 2005Q4

REPORT INFORMATION
  Report Type: 
  Country: None (occurrence: None)
  Receive Date: 20051201
  Receipt Date: 20050901
  Transmission Date: 20060501
  Serious: No
  Sender: FDA-Public Use
  Company Number: 2005PV001477

PATIENT
  Age: 58 Year
  Sex: Female
  Weight: 113.3993 kg

DRUGS (5)
  1. BYETTA [Suspect]
     Indication: DIABETES MELLITUS NON-INSULIN-DEPENDENT
     Dosage: 5 MCG;BID;SC
     Route: 058
     Dates: start: 20050818
  2. ACTOS [Suspect]
     Indication: DIABETES MELLITUS NON-INSULIN-DEPENDENT
     Dosage: 30 MG;QD;PO
     Route: 048
     Dates: start: 19930101
  3. TIAZAC [Concomitant]
  4. LIPITOR [Concomitant]
  5. PROTONIX [Concomitant]

REACTIONS (3)
  - FUNGAL INFECTION [None]
  - METRORRHAGIA [None]
  - NAUSEA [None]
